FAERS Safety Report 4467222-5 (Version None)
Quarter: 2004Q4

REPORT INFORMATION
  Report Type: 
  Country: None (occurrence: None)
  Receive Date: 20041006
  Receipt Date: 20041001
  Transmission Date: 20050328
  Serious: Yes (Hospitalization)
  Sender: FDA-Public Use
  Company Number: ES-MERCK-0410ESP00011

PATIENT
  Age: 60 Year
  Sex: Male

DRUGS (10)
  1. ACENOCOUMAROL [Concomitant]
     Route: 065
  2. ATENOLOL [Concomitant]
     Route: 065
  3. AZATHIOPRINE [Concomitant]
     Route: 065
  4. DIGOXIN [Concomitant]
     Route: 065
  5. MESALAMINE [Concomitant]
     Route: 065
  6. METHYLPREDNISOLONE [Concomitant]
     Route: 065
  7. PANTOPRAZOLE [Concomitant]
     Route: 065
  8. VIOXX [Suspect]
     Indication: ARTHRITIS
     Route: 048
     Dates: start: 20030101
  9. TOLBUTAMIDE [Concomitant]
     Route: 065
  10. TORSEMIDE [Concomitant]
     Route: 065

REACTIONS (1)
  - ARRHYTHMIA [None]
